FAERS Safety Report 7624429-3 (Version None)
Quarter: 2011Q3

REPORT INFORMATION
  Report Type: 
  Country: None (occurrence: None)
  Receive Date: 20110720
  Receipt Date: 20110715
  Transmission Date: 20111222
  Serious: Yes (Life-Threatening, Other)
  Sender: FDA-Public Use
  Company Number: JP-CEPHALON-2011001854

PATIENT
  Age: 61 Year
  Sex: Female

DRUGS (2)
  1. BENDAMUSTINE HCL [Suspect]
     Indication: B-CELL LYMPHOMA
     Route: 042
     Dates: start: 20110111, end: 20110302
  2. BENDAMUSTINE HCL [Suspect]
     Route: 042
     Dates: start: 20110405

REACTIONS (7)
  - NEUTROPHIL COUNT DECREASED [None]
  - PHLEBITIS [None]
  - PLATELET COUNT DECREASED [None]
  - LYMPHOPENIA [None]
  - URINARY TRACT INFECTION [None]
  - HAEMOLYTIC ANAEMIA [None]
  - WHITE BLOOD CELL COUNT DECREASED [None]
